FAERS Safety Report 12067626 (Version 2)
Quarter: 2016Q1

REPORT INFORMATION
  Report Type: Report from Study
  Country: FR (occurrence: FR)
  Receive Date: 20160211
  Receipt Date: 20160303
  Transmission Date: 20160526
  Serious: Yes (Death, Life-Threatening, Other)
  Sender: FDA-Public Use
  Company Number: FR-GLAXOSMITHKLINE-FR2016GSK018510

PATIENT
  Age: 61 Year
  Sex: Female
  Weight: 93 kg

DRUGS (9)
  1. ZANAMIVIR [Suspect]
     Active Substance: ZANAMIVIR
     Indication: H1N1 INFLUENZA
     Dosage: 600 MG, BID
     Route: 042
     Dates: start: 20160127, end: 20160201
  2. SOLU-MEDROL [Concomitant]
     Active Substance: METHYLPREDNISOLONE SODIUM SUCCINATE
     Dosage: UNK
     Route: 042
     Dates: start: 20160202, end: 20160203
  3. BLEOMYCIN [Suspect]
     Active Substance: BLEOMYCIN SULFATE
  4. ZANAMIVIR [Suspect]
     Active Substance: ZANAMIVIR
     Dosage: 600 MG, BID
     Route: 042
     Dates: start: 20160127, end: 20160201
  5. FENTANYL. [Concomitant]
     Active Substance: FENTANYL
     Dosage: UNK
     Route: 042
     Dates: start: 20160118, end: 20160203
  6. OGASTORO [Concomitant]
     Active Substance: LANSOPRAZOLE
     Dosage: 3 MG, 1D
     Route: 050
     Dates: start: 20160118, end: 20160203
  7. VALACICLOVIR [Concomitant]
     Active Substance: VALACYCLOVIR HYDROCHLORIDE
     Indication: PROPHYLAXIS
     Dosage: 500 MG, BID
     Route: 048
     Dates: start: 20160118, end: 20160203
  8. OSELTAMIVIR [Concomitant]
     Active Substance: OSELTAMIVIR
     Indication: H1N1 INFLUENZA
     Dosage: 75 MG, BID
     Dates: start: 201601, end: 201601
  9. HYPNOVEL [Concomitant]
     Active Substance: MIDAZOLAM\MIDAZOLAM HYDROCHLORIDE
     Dosage: UNK
     Route: 042
     Dates: start: 20160118, end: 20160203

REACTIONS (5)
  - Acute respiratory distress syndrome [Fatal]
  - Death [Fatal]
  - Hepatocellular injury [Unknown]
  - Hypercapnia [Fatal]
  - Hypoxia [Fatal]

NARRATIVE: CASE EVENT DATE: 2016
